FAERS Safety Report 23988831 (Version 2)
Quarter: 2024Q2

REPORT INFORMATION
  Report Type: Report from Study
  Country: CA (occurrence: CA)
  Receive Date: 20240619
  Receipt Date: 20240628
  Transmission Date: 20240716
  Serious: Yes (Other)
  Sender: FDA-Public Use
  Company Number: CA-TEVA-VS-3209312

PATIENT
  Age: 55 Year
  Sex: Male
  Weight: 79 kg

DRUGS (6)
  1. CINQAIR [Suspect]
     Active Substance: RESLIZUMAB
     Indication: Asthma
     Route: 042
     Dates: start: 20171025
  2. NEXIUM [Concomitant]
     Active Substance: ESOMEPRAZOLE MAGNESIUM
  3. ELIQUIS [Concomitant]
     Active Substance: APIXABAN
  4. CALCIUM [Concomitant]
     Active Substance: CALCIUM
  5. VITAMIN B3 [Concomitant]
     Active Substance: NIACIN
  6. PULMICORT TURBUHALER [Concomitant]
     Active Substance: BUDESONIDE

REACTIONS (1)
  - Pouchitis [Recovered/Resolved]

NARRATIVE: CASE EVENT DATE: 20240608
